FAERS Safety Report 4641118-8 (Version None)
Quarter: 2005Q2

REPORT INFORMATION
  Report Type: 
  Country: None (occurrence: None)
  Receive Date: 20050421
  Receipt Date: 20050411
  Transmission Date: 20051028
  Serious: Yes (Disabling, Other)
  Sender: FDA-Public Use
  Company Number: US-BRISTOL-MYERS SQUIBB COMPANY-12937868

PATIENT
  Age: 42 Year
  Sex: Male

DRUGS (1)
  1. SERZONE [Suspect]
     Dates: start: 19991209, end: 20030207

REACTIONS (1)
  - HEPATIC NEOPLASM MALIGNANT [None]
